FAERS Safety Report 8588202-4 (Version None)
Quarter: 2012Q3

REPORT INFORMATION
  Report Type: 
  Country: None (occurrence: None)
  Receive Date: 20120731
  Receipt Date: 20120716
  Transmission Date: 20120928
  Serious: Yes (Hospitalization, Other)
  Sender: FDA-Public Use
  Company Number: 2012-000516

PATIENT
  Age: 62 Year
  Sex: Female

DRUGS (30)
  1. ACIPHEX [Concomitant]
  2. PREDNISONE TAB [Concomitant]
  3. CEFUROXIME [Concomitant]
  4. METOCLOPRAMIDE [Concomitant]
  5. MOMETASONE FUROATE [Concomitant]
  6. ZETIA [Concomitant]
  7. PSEUDOVENT (GUAIFENESIN, PSEUDOEPHEDRINE HYDROCHLORIDE) [Concomitant]
  8. SKELAXIN /00611501/ (METAXALONE) [Concomitant]
  9. TRAMADOL HCL [Concomitant]
  10. MEDROXYPROGESTERONE [Concomitant]
  11. CELEBREX [Concomitant]
  12. ALENDRONATE SODIUM [Suspect]
     Indication: OSTEOPENIA
     Dosage: 70 MG ONCE WEEKLY, ORAL
     Route: 048
     Dates: start: 20080617, end: 20111001
  13. TRICOR /00499301/ (FENOFIBRATE) [Concomitant]
  14. NABUMETONE [Concomitant]
  15. TAMIFLU [Concomitant]
  16. METHOCARBAMOL [Concomitant]
  17. CALTRATE + D /00944201/ (CALCIUM CARBONATE, COLECALCIFEROL) [Concomitant]
  18. ACTONEL [Suspect]
     Indication: OSTEOPOROSIS
     Dosage: 35 MG ONCE WEEKLY, ORAL
     Route: 048
     Dates: start: 20041110, end: 20080613
  19. ACTONEL [Suspect]
     Indication: OSTEOPENIA
     Dosage: 35 MG ONCE WEEKLY, ORAL
     Route: 048
     Dates: start: 20041110, end: 20080613
  20. FLUTICASONE PROPIONATE [Concomitant]
  21. AMOXICILLIN [Concomitant]
  22. HYDROCODONE BITARTRATE W/IBUPROFEN (HYDROCODONE BITARTRATE, IBUPROFEN) [Concomitant]
  23. HYDROCODONE W/APAP (HYDROCODONE, PARACETAMOL) [Concomitant]
  24. ZOLOFT [Concomitant]
  25. LYRICA [Concomitant]
  26. CYMBALTA [Concomitant]
  27. KETOCONAZOLE [Concomitant]
  28. AZITHROMYCIN [Concomitant]
  29. ZYRTEC [Concomitant]
  30. NEXIUM [Concomitant]

REACTIONS (9)
  - ARTHRALGIA [None]
  - FOOT FRACTURE [None]
  - FRACTURE NONUNION [None]
  - FALL [None]
  - STRESS FRACTURE [None]
  - FEMUR FRACTURE [None]
  - FRACTURE DELAYED UNION [None]
  - PAIN IN EXTREMITY [None]
  - VITAMIN D DEFICIENCY [None]
